FAERS Safety Report 24432849 (Version 2)
Quarter: 2024Q4

REPORT INFORMATION
  Report Type: Spontaneous
  Country: IT (occurrence: IT)
  Receive Date: 20241014
  Receipt Date: 20241211
  Transmission Date: 20250114
  Serious: Yes (Other)
  Sender: CELLTRION
  Company Number: IT-ROCHE-3528376

PATIENT

DRUGS (4)
  1. RITUXIMAB [Suspect]
     Active Substance: RITUXIMAB
     Indication: Acquired amegakaryocytic thrombocytopenia
     Dosage: 375 MG/M2, EVERY 1 WEEK (FOR 4 DOSES)
     Route: 042
  2. CYCLOSPORINE [Suspect]
     Active Substance: CYCLOSPORINE
     Indication: Acquired amegakaryocytic thrombocytopenia
     Dosage: 5 MG/KG, EVERY 1 DAY
     Route: 048
  3. DEXAMETHASONE [Concomitant]
     Active Substance: DEXAMETHASONE
     Dosage: 40 MG, EVERY 1 DAY (FOR 4 DAYS)
  4. PREDNISONE [Concomitant]
     Active Substance: PREDNISONE
     Dosage: 1 MG/KG, EVERY 1 DAY

REACTIONS (4)
  - Disease progression [Unknown]
  - Myelodysplastic syndrome [Unknown]
  - Drug ineffective [Unknown]
  - Intentional product use issue [Unknown]
